FAERS Safety Report 9369881 (Version 1)
Quarter: 2013Q2

REPORT INFORMATION
  Report Type: Spontaneous
  Country: US (occurrence: US)
  Receive Date: 20130626
  Receipt Date: 20130626
  Transmission Date: 20140414
  Serious: Yes (Hospitalization, Other)
  Sender: FDA-Public Use
  Company Number: US-JNJFOC-20130608898

PATIENT
  Sex: 0

DRUGS (7)
  1. ABCIXIMAB [Suspect]
     Indication: ANGINA PECTORIS
     Route: 040
  2. ABCIXIMAB [Suspect]
     Indication: ACUTE MYOCARDIAL INFARCTION
     Route: 040
  3. ABCIXIMAB [Suspect]
     Indication: ANGINA UNSTABLE
     Route: 040
  4. ABCIXIMAB [Suspect]
     Indication: PERCUTANEOUS CORONARY INTERVENTION
     Route: 040
  5. UNFRACTIONATED HEPARIN [Suspect]
     Indication: PERCUTANEOUS CORONARY INTERVENTION
     Dosage: 40 UNITS/KG
     Route: 040
  6. ASPIRIN [Concomitant]
     Indication: PERCUTANEOUS CORONARY INTERVENTION
     Route: 065
  7. CLOPIDOGREL [Concomitant]
     Indication: PERCUTANEOUS CORONARY INTERVENTION
     Dosage: 300-600 MG
     Route: 065

REACTIONS (3)
  - Myocardial infarction [Unknown]
  - Haemorrhage [Unknown]
  - Thrombocytopenia [Unknown]
